FAERS Safety Report 4616865-4 (Version None)
Quarter: 2005Q1

REPORT INFORMATION
  Report Type: 
  Country: None (occurrence: None)
  Receive Date: 20050321
  Receipt Date: 20050311
  Transmission Date: 20050727
  Serious: Yes (Hospitalization)
  Sender: FDA-Public Use
  Company Number: 2005039634

PATIENT
  Age: 59 Year
  Sex: Female

DRUGS (3)
  1. CITALOR                 (ATORVASTATIN) [Suspect]
     Indication: DYSLIPIDAEMIA
     Dosage: 10 MG (10 MG, 1 IN 1 D) ORAL
     Route: 048
     Dates: start: 20041001
  2. FORASEO      (BUDESONIDE, FORMOTEROL) [Concomitant]
  3. OMEPRAZOLE [Concomitant]

REACTIONS (1)
  - HERNIA HIATUS REPAIR [None]
